FAERS Safety Report 6501612-1 (Version None)
Quarter: 2009Q4

REPORT INFORMATION
  Report Type: 
  Country: None (occurrence: None)
  Receive Date: 20091127
  Receipt Date: 20090422
  Transmission Date: 20100525
  Serious: Yes (Other)
  Sender: FDA-Public Use
  Company Number: WAES 0706USA01000

PATIENT
  Age: 63 Year
  Sex: Female

DRUGS (3)
  1. FOSAMAX [Suspect]
     Indication: OSTEOPOROSIS
     Dosage: 25 MG/BID/PO : 10 MG/DAILY/PO : 70 MG/WKY/PO
     Route: 048
     Dates: start: 19960301, end: 20010101
  2. FOSAMAX [Suspect]
     Indication: OSTEOPOROSIS
     Dosage: 25 MG/BID/PO : 10 MG/DAILY/PO : 70 MG/WKY/PO
     Route: 048
     Dates: start: 20010101, end: 20060201
  3. FOSAMAX [Suspect]
     Indication: OSTEOPOROSIS
     Dosage: 25 MG/BID/PO : 10 MG/DAILY/PO : 70 MG/WKY/PO
     Route: 048
     Dates: start: 19960413

REACTIONS (7)
  - ANXIETY [None]
  - BLOOD CHOLESTEROL INCREASED [None]
  - DEPRESSION [None]
  - HYPERTENSION [None]
  - OSTEONECROSIS [None]
  - OVERDOSE [None]
  - TRISMUS [None]
